FAERS Safety Report 13127333 (Version 2)
Quarter: 2017Q2

REPORT INFORMATION
  Report Type: Report from Study
  Country: None (occurrence: US)
  Receive Date: 20170118
  Receipt Date: 20170425
  Transmission Date: 20170830
  Serious: Yes (Other)
  Sender: FDA-Public Use
  Company Number: US-ABBVIE-17P-163-1844114-00

PATIENT
  Sex: Male
  Weight: 5.4 kg

DRUGS (7)
  1. SYNAGIS [Suspect]
     Active Substance: PALIVIZUMAB
     Indication: PREMATURE BABY
     Route: 030
     Dates: start: 201612
  2. SYNAGIS [Suspect]
     Active Substance: PALIVIZUMAB
     Indication: ANTIVIRAL PROPHYLAXIS
     Route: 030
     Dates: start: 201612
  3. SYNAGIS [Suspect]
     Active Substance: PALIVIZUMAB
     Indication: UNDERWEIGHT
     Route: 030
     Dates: start: 201612
  4. SYNAGIS [Suspect]
     Active Substance: PALIVIZUMAB
     Indication: ANTIVIRAL PROPHYLAXIS
     Route: 030
  5. SYNAGIS [Suspect]
     Active Substance: PALIVIZUMAB
     Indication: PREMATURE BABY
     Route: 030
  6. POLIVITAMIN WITH IRON [Concomitant]
     Indication: PRODUCT USED FOR UNKNOWN INDICATION
  7. SYNAGIS [Suspect]
     Active Substance: PALIVIZUMAB
     Indication: UNDERWEIGHT
     Route: 030

REACTIONS (4)
  - Inguinal hernia [Unknown]
  - Cough [Unknown]
  - Viral upper respiratory tract infection [Unknown]
  - Nasal congestion [Unknown]
